FAERS Safety Report 4673039-9 (Version None)
Quarter: 2005Q2

REPORT INFORMATION
  Report Type: 
  Country: None (occurrence: None)
  Receive Date: 20050523
  Receipt Date: 20050509
  Transmission Date: 20051028
  Serious: Yes (Hospitalization, Other)
  Sender: FDA-Public Use
  Company Number: 2005-00062

PATIENT
  Age: 68 Year
  Sex: Female
  Weight: 63 kg

DRUGS (2)
  1. VELCADE [Suspect]
     Indication: MULTIPLE MYELOMA
     Dosage: 2.40 MG, UNK, INTRAVENOUS
     Route: 042
     Dates: start: 20041005, end: 20041126
  2. INSULIN [Concomitant]

REACTIONS (5)
  - CARDIAC FAILURE ACUTE [None]
  - CONGESTIVE CARDIOMYOPATHY [None]
  - GASTROINTESTINAL DISORDER [None]
  - MYOCARDIAL ISCHAEMIA [None]
  - VENTRICULAR HYPOKINESIA [None]
